FAERS Safety Report 6401097-X (Version None)
Quarter: 2009Q4

REPORT INFORMATION
  Report Type: 
  Country: None (occurrence: None)
  Receive Date: 20091015
  Receipt Date: 20091007
  Transmission Date: 20100525
  Serious: Yes (Hospitalization)
  Sender: FDA-Public Use
  Company Number: US-JNJFOC-20091004230

PATIENT
  Age: 10 Year
  Sex: Male
  Weight: 24.49 kg

DRUGS (5)
  1. CHILDREN'S TYLENOL PLUS COUGH + RUNNY NOSE CHERRY [Suspect]
     Indication: NASOPHARYNGITIS
     Dosage: 10 ML EVERY 4-6 HOURS FOR FOUR DAYS
     Route: 048
  2. SENOKOT [Concomitant]
     Indication: FREQUENT BOWEL MOVEMENTS
  3. ALBUTEROL [Concomitant]
     Indication: DYSPNOEA
  4. PULMICORT [Concomitant]
     Indication: DYSPNOEA
  5. PREVACID [Concomitant]
     Indication: ANTACID THERAPY

REACTIONS (6)
  - BACTERIAL INFECTION [None]
  - COUGH [None]
  - DIARRHOEA [None]
  - RHINORRHOEA [None]
  - TRANSMISSION OF AN INFECTIOUS AGENT VIA A MEDICINAL PRODUCT [None]
  - VOMITING [None]
